FAERS Safety Report 5008188-9 (Version None)
Quarter: 2006Q2

REPORT INFORMATION
  Report Type: 
  Country: None (occurrence: None)
  Receive Date: 20060522
  Receipt Date: 20060517
  Transmission Date: 20061013
  Serious: Yes (Life-Threatening)
  Sender: FDA-Public Use
  Company Number: US-MERCK-0605USA03537

PATIENT
  Age: 50 Year
  Sex: Female

DRUGS (5)
  1. EMEND [Suspect]
     Indication: PROPHYLAXIS OF NAUSEA AND VOMITING
     Route: 048
     Dates: start: 20050801, end: 20050801
  2. EMEND [Suspect]
     Route: 048
     Dates: start: 20050801, end: 20050801
  3. ANTINEOPLASTIC (UNSPECIFIED) [Concomitant]
     Route: 065
  4. TENORMIN [Concomitant]
     Route: 065
  5. GLIPIZIDE [Concomitant]
     Route: 065

REACTIONS (2)
  - CHEST PAIN [None]
  - TACHYCARDIA [None]
